FAERS Safety Report 9260571 (Version 1)
Quarter: 2013Q2

REPORT INFORMATION
  Report Type: Spontaneous
  Country: US (occurrence: US)
  Receive Date: 20130429
  Receipt Date: 20130429
  Transmission Date: 20140414
  Serious: Yes (Hospitalization)
  Sender: FDA-Public Use
  Company Number: US-BAYER-2013-051772

PATIENT
  Age: 39 Year
  Sex: Female
  Weight: 54.88 kg

DRUGS (17)
  1. YAZ [Suspect]
  2. MOTRIN [Concomitant]
  3. DILANTIN [Concomitant]
     Indication: CONVULSION PROPHYLAXIS
  4. DECADRON [Concomitant]
  5. ATIVAN [Concomitant]
     Indication: CONVULSION
  6. PROPOFOL TITRATE [Concomitant]
     Indication: SEDATION
  7. PROTONIX [Concomitant]
  8. ALBUTEROL [Concomitant]
  9. ATROVENT [Concomitant]
  10. INSULIN [Concomitant]
  11. NIMODIPINE [Concomitant]
  12. NIMOTOP [Concomitant]
  13. VALTREX [Concomitant]
  14. TYLENOL [Concomitant]
  15. PEPCID [Concomitant]
  16. FOLTX [Concomitant]
  17. DEXAMETHASONE [Concomitant]
     Indication: BRAIN OEDEMA

REACTIONS (3)
  - Pulmonary embolism [None]
  - Intracranial venous sinus thrombosis [None]
  - Haemorrhagic transformation stroke [None]
